FAERS Safety Report 5044821-3 (Version None)
Quarter: 2006Q2

REPORT INFORMATION
  Report Type: 
  Country: None (occurrence: None)
  Receive Date: 20060601
  Receipt Date: 20060322
  Transmission Date: 20061013
  Serious: No
  Sender: FDA-Public Use
  Company Number: 2006-BP-02602BP

PATIENT
  Age: 60 Year
  Sex: Female

DRUGS (12)
  1. SPIRIVA [Suspect]
     Indication: ASTHMA
     Dosage: 18 MCG (18 MCG), IH
     Route: 055
     Dates: start: 20050901
  2. SPIRIVA [Suspect]
     Indication: EMPHYSEMA
     Dosage: 18 MCG (18 MCG), IH
     Route: 055
     Dates: start: 20050901
  3. SPIRIVA [Suspect]
  4. VERAPAMIL [Concomitant]
  5. ADVAIR (SERETIDE /01420901/) [Concomitant]
  6. ZETIA [Concomitant]
  7. LISINOPRIL (LISIONPRIL) [Concomitant]
  8. THEOPHYLLINE [Concomitant]
  9. METFORMIN (METFORMIN) [Concomitant]
  10. PRAVACHOL [Concomitant]
  11. FOSAMAX [Concomitant]
  12. ASPIRIN TAB [Concomitant]

REACTIONS (2)
  - BRONCHITIS [None]
  - PNEUMONIA [None]
